FAERS Safety Report 9214614 (Version 2)
Quarter: 2013Q2

REPORT INFORMATION
  Report Type: Spontaneous
  Country: ES (occurrence: ES)
  Receive Date: 20130405
  Receipt Date: 20130426
  Transmission Date: 20140414
  Serious: Yes (Other)
  Sender: FDA-Public Use
  Company Number: ES-ROCHE-1210019

PATIENT
  Age: 48 Year
  Sex: Male

DRUGS (3)
  1. PEGASYS [Suspect]
     Indication: HEPATITIS C
     Route: 058
     Dates: start: 20120528, end: 20130220
  2. INCIVO [Suspect]
     Indication: HEPATITIS C
     Route: 065
     Dates: start: 2012
  3. RIBAVIRINA [Suspect]
     Indication: HEPATITIS C
     Route: 048
     Dates: start: 20120528, end: 20130222

REACTIONS (2)
  - Hepatocellular injury [Recovering/Resolving]
  - Rash [Recovering/Resolving]
